FAERS Safety Report 9707887 (Version 3)
Quarter: 2014Q1

REPORT INFORMATION
  Report Type: Report from Study
  Country: FR (occurrence: FR)
  Receive Date: 20131125
  Receipt Date: 20140115
  Transmission Date: 20141002
  Serious: Yes (Other)
  Sender: FDA-Public Use
  Company Number: FR-PFIZER INC-2013310248

PATIENT
  Age: 63 Year
  Sex: Female
  Weight: 70 kg

DRUGS (11)
  1. ATGAM [Suspect]
     Indication: BONE MARROW FAILURE
     Dosage: 40 MG/KG, DAILY
     Route: 042
     Dates: start: 20120815, end: 20120818
  2. ATGAM [Suspect]
     Dosage: 40 MG/KG, DAILY
     Dates: start: 20130710, end: 20130713
  3. NEORAL [Concomitant]
     Indication: BONE MARROW FAILURE
     Dosage: 5 MG/KG, DAILY
     Dates: start: 20120815
  4. NEORAL [Concomitant]
     Dosage: 150 MG, 2X/DAY
     Route: 048
  5. NEORAL [Concomitant]
     Dosage: 25 MG, 2X/DAY
  6. NEORAL [Concomitant]
     Dosage: 150 MG, 2X/DAY
     Dates: start: 201302
  7. CORTANCYL [Concomitant]
     Indication: BONE MARROW FAILURE
  8. POLARAMINE [Concomitant]
     Indication: PREMEDICATION
     Dosage: 5 MG, DAILY
     Route: 042
  9. SOLU-MEDROL [Concomitant]
     Indication: BONE MARROW FAILURE
     Dosage: 2 MG/KG, DAILY
     Dates: start: 20120815, end: 20120818
  10. SOLU-MEDROL [Concomitant]
     Dosage: DOSE PROGRESSIVELY DECREASED
     Dates: start: 20130819
  11. PARACETAMOL [Concomitant]
     Indication: PREMEDICATION
     Dosage: 1000 MG, UNK
     Route: 048

REACTIONS (2)
  - Aplastic anaemia [Unknown]
  - Headache [Recovered/Resolved]
